FAERS Safety Report 4977092-4 (Version None)
Quarter: 2006Q2

REPORT INFORMATION
  Report Type: 
  Country: None (occurrence: None)
  Receive Date: 20060412
  Receipt Date: 20060331
  Transmission Date: 20061013
  Serious: Yes (Hospitalization)
  Sender: FDA-Public Use
  Company Number: 06-NIP00063

PATIENT
  Age: 56 Year
  Sex: Male

DRUGS (8)
  1. NIPENT [Suspect]
     Indication: T-CELL PROLYMPHOCYTIC LEUKAEMIA
     Dosage: 1.5486 MG (10.84 MG, ONCE WEEKLY), INTRAVENOUS
     Route: 042
     Dates: start: 20060315
  2. CAMPATH [Suspect]
     Indication: T-CELL PROLYMPHOCYTIC LEUKAEMIA
     Dosage: 12.8571 MG (30 MG, THREE TIMES WEEKL)
     Dates: start: 20060315, end: 20060316
  3. LACRI TUBE (OINTEMENT) [Concomitant]
  4. VALCYTE (VALGANCICLOVIR HYDROCHLORIDE (VALGANCICLOVIR HYDROCHLORIDE) [Concomitant]
  5. VORICONAZOLE (VORICONAZOLE) (VORICONAZOLE) [Concomitant]
  6. BACTRIM [Concomitant]
  7. FLOVENT (FLUTICASONE PROPIONATE) (FLUTICASONE PROPIONATE) [Concomitant]
  8. TOBRADEX (DEXAMETHASONE, TOBRAMYCIN) (DEXAMETHASONE, TOBRAMYCIN) [Concomitant]

REACTIONS (10)
  - ALANINE AMINOTRANSFERASE INCREASED [None]
  - ASPARTATE AMINOTRANSFERASE INCREASED [None]
  - BLOOD LACTATE DEHYDROGENASE INCREASED [None]
  - HYPERBILIRUBINAEMIA [None]
  - HYPERKALAEMIA [None]
  - HYPERPHOSPHATAEMIA [None]
  - HYPONATRAEMIA [None]
  - METABOLIC ACIDOSIS [None]
  - RENAL FAILURE [None]
  - TUMOUR LYSIS SYNDROME [None]
